FAERS Safety Report 12932769 (Version 1)
Quarter: 2016Q4

REPORT INFORMATION
  Report Type: Spontaneous
  Country: US (occurrence: US)
  Receive Date: 20161111
  Receipt Date: 20161111
  Transmission Date: 20170207
  Serious: No
  Sender: FDA-Public Use
  Company Number: US-PFIZER INC-2016517667

PATIENT
  Sex: Male

DRUGS (2)
  1. NORVASC [Suspect]
     Active Substance: AMLODIPINE BESYLATE
     Indication: HYPERTENSION
     Dosage: 10MG IN THE AM AND 5MG AT BEDTIME
  2. NORVASC [Suspect]
     Active Substance: AMLODIPINE BESYLATE
     Dosage: 5MG IN THE AM AND 5MG AT BEDTIME, 2X/DAY

REACTIONS (6)
  - Overdose [Unknown]
  - Product use issue [Unknown]
  - Constipation [Recovered/Resolved]
  - Lip dry [Unknown]
  - Lip exfoliation [Unknown]
  - Blood pressure decreased [Recovering/Resolving]
